FAERS Safety Report 7322639-6 (Version None)
Quarter: 2011Q1

REPORT INFORMATION
  Report Type: 
  Country: None (occurrence: None)
  Receive Date: 20110301
  Receipt Date: 20110223
  Transmission Date: 20110831
  Serious: No
  Sender: FDA-Public Use
  Company Number: US-PFIZER INC-2011041301

PATIENT
  Sex: Male

DRUGS (1)
  1. GEODON [Suspect]
     Dosage: 40 MG, 3X/DAY
     Route: 048

REACTIONS (3)
  - ERECTILE DYSFUNCTION [None]
  - NERVOUSNESS [None]
  - PALPITATIONS [None]
